FAERS Safety Report 17496212 (Version 2)
Quarter: 2020Q3

REPORT INFORMATION
  Report Type: Report from Study
  Country: US (occurrence: US)
  Receive Date: 20200304
  Receipt Date: 20200925
  Transmission Date: 20201105
  Serious: Yes (Life-Threatening, Other)
  Sender: FDA-Public Use
  Company Number: NVSC2020US058751

PATIENT
  Age: 50 Year
  Weight: 93.44 kg

DRUGS (70)
  1. CANNABIS [Concomitant]
     Active Substance: CANNABIS SATIVA SUBSP. INDICA TOP
     Dosage: 1 DF, QD
     Route: 048
     Dates: start: 20200124, end: 20200124
  2. ATIVAN [Concomitant]
     Active Substance: LORAZEPAM
     Indication: NAUSEA
     Dosage: 4 MG, Q6H
     Route: 048
  3. TEMAZEPAM. [Concomitant]
     Active Substance: TEMAZEPAM
     Indication: INSOMNIA
     Dosage: 15 MG, QD
     Route: 048
     Dates: start: 20190124
  4. LOVENOX [Concomitant]
     Active Substance: ENOXAPARIN SODIUM
     Dosage: 40 MG, QD
     Route: 058
     Dates: start: 20200109, end: 20200109
  5. MESNEX [Concomitant]
     Active Substance: MESNA
     Indication: PROPHYLAXIS
     Dosage: 6440 MG, QD
     Route: 042
     Dates: start: 20200107, end: 20200109
  6. IMODIUM [Concomitant]
     Active Substance: LOPERAMIDE HYDROCHLORIDE
     Indication: DIARRHOEA
     Dosage: 2 MG, Q4H
     Route: 048
     Dates: start: 20200108, end: 20200109
  7. MARINOL [Concomitant]
     Active Substance: DRONABINOL
     Indication: VOMITING
  8. TYLENOL [Concomitant]
     Active Substance: ACETAMINOPHEN
     Indication: PYREXIA
     Dosage: 650 MG, Q4H
     Route: 048
     Dates: start: 20200114, end: 20200117
  9. ATIVAN [Concomitant]
     Active Substance: LORAZEPAM
     Indication: INSOMNIA
  10. KLOR?CON [Concomitant]
     Active Substance: POTASSIUM CHLORIDE
     Indication: HYPOKALAEMIA
     Dosage: 20 MILLIEQUIVALENTS, QD
     Route: 048
     Dates: start: 20200125
  11. MESNEX [Concomitant]
     Active Substance: MESNA
     Dosage: 1460 MG, QD
     Route: 042
     Dates: start: 20200107, end: 20200109
  12. VANCOMYCIN [Concomitant]
     Active Substance: VANCOMYCIN
     Dosage: 1250 MG, Q8H
     Route: 042
     Dates: start: 20200117, end: 20200118
  13. BACTRIM DS [Concomitant]
     Active Substance: SULFAMETHOXAZOLE\TRIMETHOPRIM
     Indication: LYMPHOCYTE COUNT DECREASED
     Dosage: 1 DF (0.4286 DOSAGE FORMS), 3 IN 1 WK
     Route: 048
     Dates: start: 20200129
  14. PROLEUKIN [Suspect]
     Active Substance: ALDESLEUKIN
     Indication: METASTATIC MALIGNANT MELANOMA
     Dosage: 178.2 IUM (59.4 IUM,1 IN 8 HR)
     Route: 042
     Dates: start: 20190115, end: 20190116
  15. PREDNISONE. [Concomitant]
     Active Substance: PREDNISONE
     Indication: ARTHRALGIA
     Dosage: UNK
     Route: 048
  16. OXYCODONE [Concomitant]
     Active Substance: OXYCODONE
     Indication: FLANK PAIN
     Dosage: 5 MG
     Route: 048
     Dates: start: 20191219, end: 20191222
  17. IMODIUM [Concomitant]
     Active Substance: LOPERAMIDE HYDROCHLORIDE
     Dosage: 2 MG, Q8H
     Route: 048
     Dates: start: 20200116, end: 20200117
  18. TIGAN [Concomitant]
     Active Substance: TRIMETHOBENZAMIDE HYDROCHLORIDE
     Indication: NAUSEA
     Dosage: 300 MG, Q6H
     Route: 048
     Dates: start: 20200109, end: 20200114
  19. ZYPREXA [Concomitant]
     Active Substance: OLANZAPINE
     Indication: VOMITING
  20. ATIVAN [Concomitant]
     Active Substance: LORAZEPAM
     Indication: VOMITING
  21. LOVENOX [Concomitant]
     Active Substance: ENOXAPARIN SODIUM
     Indication: PROPHYLAXIS
     Dosage: 40 MG, QD
     Route: 058
     Dates: start: 20200107, end: 20200107
  22. ZYPREXA [Concomitant]
     Active Substance: OLANZAPINE
     Indication: NAUSEA
     Dosage: 5 MG, QD
     Route: 048
     Dates: start: 20200109, end: 20200113
  23. TYLENOL [Concomitant]
     Active Substance: ACETAMINOPHEN
     Dosage: 650 MG
     Route: 048
     Dates: start: 20200121, end: 20200122
  24. VANCOMYCIN [Concomitant]
     Active Substance: VANCOMYCIN
     Dosage: 200 MG, Q8H
     Route: 042
     Dates: start: 20200114, end: 20200116
  25. VANCOMYCIN [Concomitant]
     Active Substance: VANCOMYCIN
     Dosage: 1250 MG, Q12H
     Route: 042
     Dates: start: 20200119, end: 20200121
  26. ZOSYN [Concomitant]
     Active Substance: PIPERACILLIN SODIUM\TAZOBACTAM SODIUM
     Indication: NEUTROPENIA
  27. NEUPOGEN [Concomitant]
     Active Substance: FILGRASTIM
     Indication: PROPHYLAXIS
     Dosage: 480 UG, QD
     Route: 058
     Dates: start: 20200123, end: 20200124
  28. XYLOCAINE [Concomitant]
     Active Substance: LIDOCAINE HYDROCHLORIDE
     Indication: SEDATION
     Dosage: 10 ML, QD
     Route: 023
     Dates: start: 20200107, end: 20200107
  29. MARINOL [Concomitant]
     Active Substance: DRONABINOL
     Indication: NAUSEA
     Dosage: 5 MG
     Route: 048
     Dates: start: 20200109, end: 20200122
  30. TIGAN [Concomitant]
     Active Substance: TRIMETHOBENZAMIDE HYDROCHLORIDE
     Indication: VOMITING
  31. PEPCID [Concomitant]
     Active Substance: FAMOTIDINE
     Indication: PROPHYLAXIS
     Dosage: 20 MG, Q12H
     Route: 042
     Dates: start: 20200114, end: 20200117
  32. ZOSYN [Concomitant]
     Active Substance: PIPERACILLIN SODIUM\TAZOBACTAM SODIUM
     Indication: PYREXIA
     Dosage: 3.375 MG, Q8H
     Route: 042
     Dates: start: 20200113, end: 20200122
  33. GRANIX [Concomitant]
     Active Substance: TBO-FILGRASTIM
     Indication: NEUTROPENIA
     Dosage: 480 UG, QD
     Route: 058
     Dates: start: 20200115, end: 20200122
  34. VFEND [Concomitant]
     Active Substance: VORICONAZOLE
     Indication: NEUTROPENIA
  35. PHENERGAN [Concomitant]
     Active Substance: PROMETHAZINE HYDROCHLORIDE
     Indication: NAUSEA
     Dosage: 6.25 MG, Q8H
     Route: 042
     Dates: start: 20200114, end: 20200121
  36. VALTREX [Concomitant]
     Active Substance: VALACYCLOVIR HYDROCHLORIDE
     Indication: LYMPHOCYTE COUNT DECREASED
     Dosage: 2 DF, QD
     Route: 048
     Dates: start: 20200129
  37. CALCIUM GLUCONATE. [Concomitant]
     Active Substance: CALCIUM GLUCONATE
     Indication: HYPOKALAEMIA
     Dosage: 4.65 MILLIEQUIVALENTS
     Route: 042
     Dates: start: 20200108, end: 20200108
  38. CALCIUM GLUCONATE. [Concomitant]
     Active Substance: CALCIUM GLUCONATE
     Dosage: 4.65 MILLIEQUIVALENTS
     Route: 042
     Dates: start: 20200110, end: 20200111
  39. CYCLOPHOSPHAMIDE. [Suspect]
     Active Substance: CYCLOPHOSPHAMIDE
     Indication: METASTATIC MALIGNANT MELANOMA
     Dosage: 5850 MG, Q24H
     Route: 042
     Dates: start: 20200107, end: 20200108
  40. CANNABIS [Concomitant]
     Active Substance: CANNABIS SATIVA SUBSP. INDICA TOP
     Indication: INSOMNIA
     Dosage: 1 DF, QD
     Route: 055
     Dates: start: 2017, end: 20200106
  41. ATIVAN [Concomitant]
     Active Substance: LORAZEPAM
     Indication: NAUSEA
     Dosage: 1 MG, Q8H
     Route: 042
     Dates: start: 20200108, end: 20200109
  42. COMPAZINE [Concomitant]
     Active Substance: PROCHLORPERAZINE MALEATE
     Indication: VOMITING
  43. SODIUM CHLORIDE. [Concomitant]
     Active Substance: SODIUM CHLORIDE
     Indication: DIARRHOEA
     Dosage: 10000 ML
     Route: 040
     Dates: start: 20200109, end: 20200109
  44. SODIUM CHLORIDE. [Concomitant]
     Active Substance: SODIUM CHLORIDE
     Indication: VOMITING
  45. TYLENOL [Concomitant]
     Active Substance: ACETAMINOPHEN
     Indication: HEADACHE
     Dosage: 650 MG
     Route: 048
     Dates: start: 20200110, end: 20200110
  46. VANCOMYCIN [Concomitant]
     Active Substance: VANCOMYCIN
     Indication: NEUTROPENIA
     Dosage: 200 MG, QD
     Route: 042
     Dates: start: 20200113, end: 20200113
  47. ALTEPLASE. [Concomitant]
     Active Substance: ALTEPLASE
     Indication: PRODUCT USED FOR UNKNOWN INDICATION
     Dosage: 4 MG, QD
     Route: 065
     Dates: start: 20200120, end: 20200120
  48. VFEND [Concomitant]
     Active Substance: VORICONAZOLE
     Indication: PYREXIA
     Dosage: 200 MG, Q12H
     Route: 048
     Dates: start: 20200121, end: 20200122
  49. PHENERGAN [Concomitant]
     Active Substance: PROMETHAZINE HYDROCHLORIDE
     Dosage: 6.25 MG, QD
     Route: 042
     Dates: start: 20200121, end: 20200121
  50. PRILOSEC [Concomitant]
     Active Substance: OMEPRAZOLE MAGNESIUM
     Indication: DYSPHAGIA
     Dosage: 20 MG, QD
     Route: 048
     Dates: start: 20200131
  51. CALCIUM GLUCONATE. [Concomitant]
     Active Substance: CALCIUM GLUCONATE
     Dosage: 4.65 MILLIEQUIVALENTS
     Route: 042
     Dates: start: 20200122, end: 20200122
  52. PANTOPRAZOLE [Concomitant]
     Active Substance: PANTOPRAZOLE
     Indication: PROPHYLAXIS
     Dosage: UNK
     Route: 048
  53. ATIVAN [Concomitant]
     Active Substance: LORAZEPAM
     Indication: INSOMNIA
  54. ATIVAN [Concomitant]
     Active Substance: LORAZEPAM
     Indication: VOMITING
     Dosage: 2 MG, Q6H
     Route: 042
     Dates: start: 20200110, end: 20200121
  55. DIFLUCAN [Concomitant]
     Active Substance: FLUCONAZOLE
     Indication: NEUTROPENIA
     Dosage: 400 MG, QD
     Route: 048
     Dates: start: 20200122, end: 20200124
  56. LOMOTIL [Concomitant]
     Active Substance: ATROPINE SULFATE\DIPHENOXYLATE HYDROCHLORIDE
     Indication: DIARRHOEA
     Dosage: 1 DF, Q6H
     Route: 048
     Dates: start: 20200109, end: 20200110
  57. OSCAL [Concomitant]
     Active Substance: CALCIUM CARBONATE
     Indication: HYPOCALCAEMIA
     Dosage: 1000 UG
     Route: 048
     Dates: start: 20200119, end: 20200122
  58. LASIX [Concomitant]
     Active Substance: FUROSEMIDE
     Indication: PROPHYLAXIS
     Dosage: 2 DF (80 MG), QD
     Route: 042
     Dates: start: 20200116, end: 20200117
  59. FLUDARABINE PHOSPHATE. [Suspect]
     Active Substance: FLUDARABINE PHOSPHATE
     Indication: METASTATIC MALIGNANT MELANOMA
     Dosage: 55 MG, Q24H
     Route: 042
     Dates: start: 20200109, end: 20200113
  60. DIFLUCAN [Concomitant]
     Active Substance: FLUCONAZOLE
     Indication: PROPHYLAXIS
     Dosage: 400 MG, QD
     Route: 048
     Dates: start: 20200115, end: 20200121
  61. COMPAZINE [Concomitant]
     Active Substance: PROCHLORPERAZINE MALEATE
     Indication: NAUSEA
     Dosage: 10 MG, Q6H
     Route: 048
     Dates: start: 20200127
  62. IMODIUM [Concomitant]
     Active Substance: LOPERAMIDE HYDROCHLORIDE
     Dosage: 2 MG, Q8H
     Route: 048
     Dates: start: 20200127, end: 20200128
  63. VANCOMYCIN [Concomitant]
     Active Substance: VANCOMYCIN
     Indication: PYREXIA
     Dosage: 1500 MG, Q8H
     Route: 042
     Dates: start: 20200113, end: 20200114
  64. ALBUTEROL. [Concomitant]
     Active Substance: ALBUTEROL
     Indication: HYPOXIA
     Dosage: 2.5 MG
     Route: 065
     Dates: start: 20200115, end: 20200115
  65. NAPROSYN [Concomitant]
     Active Substance: NAPROXEN
     Indication: PROPHYLAXIS
     Dosage: 500 MG, Q12H
     Route: 048
     Dates: start: 20200114, end: 20200117
  66. POTASSIUM CHLORIDE. [Concomitant]
     Active Substance: POTASSIUM CHLORIDE
     Indication: HYPOCALCAEMIA
     Dosage: 20 MILLIEQUIVALENTS, QD
     Route: 042
     Dates: start: 20200116, end: 20200116
  67. POTASSIUM BICARBONATE. [Concomitant]
     Active Substance: POTASSIUM BICARBONATE
     Indication: HYPOKALAEMIA
     Dosage: 20 MILLIEQUIVALENTS, QD
     Route: 048
     Dates: start: 20200116, end: 20200116
  68. POTASSIUM BICARBONATE. [Concomitant]
     Active Substance: POTASSIUM BICARBONATE
     Dosage: 40 MILLIEQUIVALENTS, QD
     Route: 048
     Dates: start: 20200116, end: 20200116
  69. LASIX [Concomitant]
     Active Substance: FUROSEMIDE
     Indication: OEDEMA
     Dosage: 20 MG, QD
     Route: 042
     Dates: start: 20200121, end: 20200121
  70. SENOKOT [Concomitant]
     Active Substance: SENNOSIDES
     Indication: CONSTIPATION
     Dosage: 8.6 MG, QD
     Route: 048
     Dates: start: 20200119, end: 20200119

REACTIONS (1)
  - Hypophosphataemia [Recovered/Resolved]

NARRATIVE: CASE EVENT DATE: 20200124
